FAERS Safety Report 7481641-4 (Version None)
Quarter: 2011Q2

REPORT INFORMATION
  Report Type: 
  Country: None (occurrence: None)
  Receive Date: 20110516
  Receipt Date: 20110512
  Transmission Date: 20111010
  Serious: Yes (Other)
  Sender: FDA-Public Use
  Company Number: CO-ROCHE-776759

PATIENT
  Sex: Female

DRUGS (3)
  1. ACTEMRA [Suspect]
     Indication: RHEUMATOID ARTHRITIS
     Route: 042
     Dates: start: 20110419
  2. TRAMADOL HYDROCHLORIDE [Concomitant]
     Indication: PAIN
     Dosage: FREQUENCY: AS REQUIRED, DOSE: DROPS
     Route: 048
  3. DICLOFENAC SODIUM [Concomitant]
     Indication: PAIN
     Dosage: FREQUENCY: AS REQUIRED
     Route: 048

REACTIONS (1)
  - PAIN IN EXTREMITY [None]
